FAERS Safety Report 10613127 (Version 2)
Quarter: 2015Q1

REPORT INFORMATION
  Report Type: Spontaneous
  Country: US (occurrence: US)
  Receive Date: 20141128
  Receipt Date: 20150204
  Transmission Date: 20150720
  Serious: Yes (Other)
  Sender: FDA-Public Use
  Company Number: US-AMGEN-USASP2014092278

PATIENT
  Age: 45 Year
  Sex: Male

DRUGS (1)
  1. ENBREL [Suspect]
     Active Substance: ETANERCEPT
     Indication: PSORIASIS
     Dosage: 50 MG, EVERY 3 TO 4 DAYS
     Route: 065
     Dates: start: 20000101

REACTIONS (6)
  - Fall [Recovered/Resolved]
  - Blood disorder [Unknown]
  - Peripheral arterial occlusive disease [Recovered/Resolved]
  - Psoriasis [Not Recovered/Not Resolved]
  - Adverse drug reaction [Unknown]
  - Rash [Not Recovered/Not Resolved]

NARRATIVE: CASE EVENT DATE: 2011
